FAERS Safety Report 16267546 (Version 1)
Quarter: 2019Q2

REPORT INFORMATION
  Report Type: Report from Study
  Country: None (occurrence: CA)
  Receive Date: 20190503
  Receipt Date: 20190503
  Transmission Date: 20190711
  Serious: Yes (Hospitalization)
  Sender: FDA-Public Use
  Company Number: CA-ABBVIE-19K-028-2764421-00

PATIENT
  Age: 45 Year
  Sex: Male

DRUGS (1)
  1. HUMIRA [Suspect]
     Active Substance: ADALIMUMAB
     Indication: COLITIS ULCERATIVE
     Route: 058
     Dates: start: 20180607

REACTIONS (7)
  - Vomiting [Recovering/Resolving]
  - Dizziness [Recovering/Resolving]
  - Haemorrhage [Recovering/Resolving]
  - Syncope [Recovering/Resolving]
  - Colitis ulcerative [Recovering/Resolving]
  - Dehydration [Recovering/Resolving]
  - Visual impairment [Recovering/Resolving]

NARRATIVE: CASE EVENT DATE: 201903
